FAERS Safety Report 5215894-X (Version None)
Quarter: 2007Q1

REPORT INFORMATION
  Report Type: 
  Country: None (occurrence: None)
  Receive Date: 20070123
  Receipt Date: 20070112
  Transmission Date: 20070707
  Serious: Yes (Hospitalization)
  Sender: FDA-Public Use
  Company Number: GB-ROCHE-479118

PATIENT
  Age: 45 Year
  Sex: Female

DRUGS (6)
  1. XENICAL [Suspect]
     Indication: OBESITY
     Route: 048
  2. BLACK COHOSH [Suspect]
     Route: 048
  3. AGNUS CASTUS [Concomitant]
     Route: 048
  4. DICLOFENAC SODIUM [Concomitant]
     Route: 048
  5. IBUPROFEN [Concomitant]
     Indication: HEADACHE
     Route: 048
  6. ISOFLURANE [Concomitant]
     Route: 048

REACTIONS (2)
  - JAUNDICE [None]
  - LIVER FUNCTION TEST ABNORMAL [None]
